FAERS Safety Report 4630831-4 (Version None)
Quarter: 2005Q1

REPORT INFORMATION
  Report Type: 
  Country: None (occurrence: None)
  Receive Date: 20050331
  Receipt Date: 20050331
  Transmission Date: 20050727
  Serious: Yes (Other)
  Sender: FDA-Public Use
  Company Number: None

PATIENT
  Age: 59 Year
  Sex: Male
  Weight: 53.5244 kg

DRUGS (1)
  1. FENTANYL PATCH   75MCG/HR    MYLAN [Suspect]
     Indication: PAIN
     Dosage: 1 PATCH   Q55 HRS    TRANSDER
     Route: 062
     Dates: start: 20050304, end: 20050330

REACTIONS (1)
  - PHARMACEUTICAL PRODUCT COMPLAINT [None]
